FAERS Safety Report 8553631-1 (Version None)
Quarter: 2012Q3

REPORT INFORMATION
  Report Type: 
  Country: None (occurrence: None)
  Receive Date: 20120731
  Receipt Date: 20120725
  Transmission Date: 20120928
  Serious: Yes (Other)
  Sender: FDA-Public Use
  Company Number: PHHY2012US064124

PATIENT
  Age: 40 Year
  Sex: Male

DRUGS (5)
  1. AMLODIPINE [Concomitant]
  2. GLIPIZIDE [Concomitant]
  3. SIMVASTATIN [Suspect]
  4. LISINOPRIL [Concomitant]
  5. ATENOLOL [Concomitant]

REACTIONS (4)
  - DYSPNOEA [None]
  - PULMONARY FIBROSIS [None]
  - HYPERPLASIA [None]
  - INTERSTITIAL LUNG DISEASE [None]
